FAERS Safety Report 20590752 (Version 1)
Quarter: 2022Q1

REPORT INFORMATION
  Report Type: Spontaneous
  Country: US (occurrence: US)
  Receive Date: 20220314
  Receipt Date: 20220314
  Transmission Date: 20220423
  Serious: No
  Sender: FDA-Public Use
  Company Number: US-TAKEDA-2022TUS016067

PATIENT
  Age: 71 Year
  Sex: Female

DRUGS (1)
  1. ENTYVIO [Suspect]
     Active Substance: VEDOLIZUMAB
     Indication: Crohn^s disease
     Dosage: UNK
     Route: 042
     Dates: start: 2016

REACTIONS (5)
  - Colon injury [Unknown]
  - Diarrhoea [Unknown]
  - Dehydration [Unknown]
  - Pain [Unknown]
  - Headache [Unknown]
